FAERS Safety Report 9440801 (Version 3)
Quarter: 2015Q1

REPORT INFORMATION
  Report Type: Spontaneous
  Country: BR (occurrence: BR)
  Receive Date: 20130805
  Receipt Date: 20150120
  Transmission Date: 20150721
  Serious: Yes (Hospitalization)
  Sender: FDA-Public Use
  Company Number: BR-ELI_LILLY_AND_COMPANY-BR201307009168

PATIENT
  Sex: Female
  Weight: 55 kg

DRUGS (1)
  1. HUMULIN N [Suspect]
     Active Substance: INSULIN HUMAN
     Indication: TYPE 1 DIABETES MELLITUS
     Dosage: UNK, UNKNOWN
     Route: 058
     Dates: start: 2007

REACTIONS (4)
  - Hypoglycaemia [Not Recovered/Not Resolved]
  - Exposure during pregnancy [Unknown]
  - Hyperglycaemia [Not Recovered/Not Resolved]
  - Helicobacter gastritis [Unknown]

NARRATIVE: CASE EVENT DATE: 2008
